FAERS Safety Report 9111688 (Version 1)
Quarter: 2013Q1

REPORT INFORMATION
  Report Type: Spontaneous
  Country: US (occurrence: US)
  Receive Date: 20130219
  Receipt Date: 20130219
  Transmission Date: 20140127
  Serious: Yes (Hospitalization)
  Sender: FDA-Public Use
  Company Number: US-BRISTOL-MYERS SQUIBB COMPANY-16999039

PATIENT
  Age: 69 Year
  Sex: Female
  Weight: 81.18 kg

DRUGS (13)
  1. ABATACEPT SUBQ INJECTION 125MG/ML [Suspect]
     Indication: RHEUMATOID ARTHRITIS
     Route: 058
     Dates: start: 20120821
  2. METHOTREXATE [Suspect]
  3. LEFLUNOMIDE [Concomitant]
  4. CYCLOBENZAPRINE [Concomitant]
  5. ETODOLAC [Concomitant]
  6. LYRICA [Concomitant]
  7. JANUMET [Concomitant]
  8. FLORASTOR [Concomitant]
  9. FOLIC ACID [Concomitant]
  10. CALCIUM [Concomitant]
  11. CYMBALTA [Concomitant]
  12. ESTRADIOL [Concomitant]
  13. CLEOCIN [Concomitant]

REACTIONS (1)
  - Cellulitis [Not Recovered/Not Resolved]
